FAERS Safety Report 7608786-X (Version None)
Quarter: 2011Q3

REPORT INFORMATION
  Report Type: 
  Country: None (occurrence: None)
  Receive Date: 20110714
  Receipt Date: 20110712
  Transmission Date: 20111222
  Serious: Yes (Other)
  Sender: FDA-Public Use
  Company Number: JP-PFIZER INC-2011157656

PATIENT
  Age: 59 Year
  Sex: Female

DRUGS (3)
  1. DEPAKENE [Suspect]
     Indication: EPILEPSY
     Dosage: 600 MG/DAY
     Route: 048
  2. TEGRETOL [Suspect]
     Indication: EPILEPSY
     Dosage: 300 MG/DAY
     Route: 048
  3. LYRICA [Suspect]
     Indication: SCIATICA
     Dosage: 150 MG/DAY
     Route: 048
     Dates: start: 20110101, end: 20110623

REACTIONS (3)
  - EPILEPSY [None]
  - LOSS OF CONSCIOUSNESS [None]
  - GRAND MAL CONVULSION [None]
